FAERS Safety Report 4466841-X (Version None)
Quarter: 2004Q4

REPORT INFORMATION
  Report Type: 
  Country: None (occurrence: None)
  Receive Date: 20041001
  Receipt Date: 20040920
  Transmission Date: 20050328
  Serious: Yes (Death)
  Sender: FDA-Public Use
  Company Number: 199603

PATIENT
  Age: 49 Year
  Sex: Male

DRUGS (5)
  1. AVONEX [Suspect]
     Indication: MULTIPLE SCLEROSIS
     Dosage: 30 MCG QW; IM
     Route: 030
     Dates: start: 20000310
  2. AVONEX [Suspect]
     Indication: MULTIPLE SCLEROSIS
     Dosage: 30 MCG QW; IM
     Route: 030
     Dates: end: 20040529
  3. BACLOFEN [Concomitant]
  4. DITROPAN [Concomitant]
  5. PROVIGIL [Concomitant]

REACTIONS (2)
  - CARDIAC ARREST [None]
  - PULMONARY EMBOLISM [None]
